FAERS Safety Report 16424499 (Version 2)
Quarter: 2019Q4

REPORT INFORMATION
  Report Type: Spontaneous
  Country: BE (occurrence: BE)
  Receive Date: 20190613
  Receipt Date: 20191204
  Transmission Date: 20200122
  Serious: Yes (Disabling, Other)
  Sender: FDA-Public Use
  Company Number: BE-SUN PHARMACEUTICAL INDUSTRIES LTD-2019R1-210480

PATIENT
  Age: 68 Year
  Sex: Male

DRUGS (4)
  1. CISPLATIN. [Suspect]
     Active Substance: CISPLATIN
     Indication: CHEMOTHERAPY
     Dosage: 100 MG/MSQ [DAY 1]
     Route: 065
  2. 5-FLUOROURACIL [Suspect]
     Active Substance: FLUOROURACIL
     Indication: CHEMOTHERAPY
     Dosage: 1,000 MG/MSQ, DAY 1 - DAY 4
     Route: 065
  3. CARBOPLATIN. [Suspect]
     Active Substance: CARBOPLATIN
     Indication: ADENOCARCINOMA
     Dosage: UNK
     Route: 065
  4. PACLITAXEL. [Suspect]
     Active Substance: PACLITAXEL
     Indication: ADENOCARCINOMA
     Dosage: UNK
     Route: 065

REACTIONS (9)
  - Drug ineffective [Unknown]
  - Disease progression [Unknown]
  - Nausea [Unknown]
  - Polyneuropathy [Unknown]
  - Neutropenia [Recovering/Resolving]
  - Metastasis [Recovering/Resolving]
  - Pruritus [Unknown]
  - Blindness [Recovering/Resolving]
  - Blindness unilateral [Unknown]
